FAERS Safety Report 8837257 (Version 1)
Quarter: 2012Q4

REPORT INFORMATION
  Report Type: Spontaneous
  Country: US (occurrence: None)
  Receive Date: 20121011
  Receipt Date: 20121011
  Transmission Date: 20130627
  Serious: Yes (Hospitalization)
  Sender: FDA-Public Use
  Company Number: None

PATIENT
  Age: 61 Year
  Sex: Female
  Weight: 62 kg

DRUGS (1)
  1. CEFOTETAN [Suspect]
     Indication: PROPHYLAXIS
     Dosage: 2 gm once IV bolus
     Route: 040
     Dates: start: 20120917, end: 20120917

REACTIONS (2)
  - Haemolytic anaemia [None]
  - Cerebral haemorrhage [None]
